FAERS Safety Report 4272235-2 (Version None)
Quarter: 2004Q1

REPORT INFORMATION
  Report Type: 
  Country: None (occurrence: None)
  Receive Date: 20040114
  Receipt Date: 20031231
  Transmission Date: 20041129
  Serious: Yes (Hospitalization)
  Sender: FDA-Public Use
  Company Number: S03-USA-04093-01

PATIENT
  Age: 27 Year
  Sex: Male

DRUGS (11)
  1. LEXAPRO [Suspect]
     Indication: BIPOLAR DISORDER
     Dosage: 10 MG QD PO
     Route: 048
     Dates: start: 20030301, end: 20030101
  2. LEXAPRO [Suspect]
     Indication: DEPRESSION
     Dosage: 10 MG QD PO
     Route: 048
     Dates: start: 20030301, end: 20030101
  3. LEXAPRO [Suspect]
     Indication: OBSESSIVE RUMINATION
     Dosage: 10 MG QD PO
     Route: 048
     Dates: start: 20030301, end: 20030101
  4. LEXAPRO [Suspect]
     Indication: BIPOLAR DISORDER
     Dosage: 20 MG QD PO
     Route: 048
     Dates: start: 20030101, end: 20030101
  5. LEXAPRO [Suspect]
     Indication: DEPRESSION
     Dosage: 20 MG QD PO
     Route: 048
     Dates: start: 20030101, end: 20030101
  6. LEXAPRO [Suspect]
     Indication: OBSESSIVE RUMINATION
     Dosage: 20 MG QD PO
     Route: 048
     Dates: start: 20030101, end: 20030101
  7. LEXAPRO [Suspect]
     Indication: BIPOLAR DISORDER
     Dosage: 10 MG QD PO
     Route: 048
     Dates: start: 20030101
  8. LEXAPRO [Suspect]
     Indication: DEPRESSION
     Dosage: 10 MG QD PO
     Route: 048
     Dates: start: 20030101
  9. LEXAPRO [Suspect]
     Indication: OBSESSIVE RUMINATION
     Dosage: 10 MG QD PO
     Route: 048
     Dates: start: 20030101
  10. RISPERDAL [Suspect]
     Indication: BIPOLAR DISORDER
     Dosage: 2.5 MG QD
     Dates: start: 20030101
  11. LITHIUM CARBONATE [Suspect]
     Indication: BIPOLAR DISORDER
     Dosage: 1500 MG QD
     Dates: start: 20030101

REACTIONS (2)
  - DEEP VEIN THROMBOSIS [None]
  - PULMONARY EMBOLISM [None]
